FAERS Safety Report 24914953 (Version 1)
Quarter: 2025Q1

REPORT INFORMATION
  Report Type: Spontaneous
  Country: PL (occurrence: PL)
  Receive Date: 20250203
  Receipt Date: 20250203
  Transmission Date: 20250409
  Serious: Yes (Other)
  Sender: ROCHE
  Company Number: PL-ROCHE-10000191834

PATIENT
  Age: 16 Year
  Sex: Male

DRUGS (3)
  1. GLOFITAMAB [Suspect]
     Active Substance: GLOFITAMAB
     Indication: Product used for unknown indication
     Route: 065
  2. GLOFITAMAB [Suspect]
     Active Substance: GLOFITAMAB
     Route: 065
  3. GAZYVA [Suspect]
     Active Substance: OBINUTUZUMAB
     Indication: Product used for unknown indication
     Route: 065

REACTIONS (2)
  - Off label use [Unknown]
  - Tumour obstruction [Unknown]
